FAERS Safety Report 17408959 (Version 3)
Quarter: 2020Q1

REPORT INFORMATION
  Report Type: Other
  Country: AE (occurrence: AE)
  Receive Date: 20200212
  Receipt Date: 20200320
  Transmission Date: 20200409
  Serious: Yes (Hospitalization, Other)
  Sender: FDA-Public Use
  Company Number: GB-RECORDATI RARE DISEASES-2080191

PATIENT
  Age: 7 Year
  Sex: Female

DRUGS (4)
  1. CYSTADANE [Suspect]
     Active Substance: BETAINE
     Indication: HOMOCYSTINURIA
  2. FOLATE [Concomitant]
     Active Substance: FOLATE SODIUM
  3. VITAMIN B12 [HYDROXOCOBALAMIN] [Concomitant]
     Active Substance: HYDROXOCOBALAMIN
     Route: 030
  4. VITAMIN B6 [Concomitant]
     Active Substance: PYRIDOXINE HYDROCHLORIDE

REACTIONS (10)
  - Intracranial pressure increased [Recovered/Resolved]
  - Mitral valve prolapse [Unknown]
  - Treatment noncompliance [Unknown]
  - Brain oedema [Unknown]
  - Leukoencephalopathy [Unknown]
  - Headache [Recovered/Resolved]
  - White matter lesion [Recovered/Resolved]
  - Mitral valve incompetence [Unknown]
  - Visual impairment [Unknown]
  - Hypermethioninaemia [Unknown]
